FAERS Safety Report 24622588 (Version 2)
Quarter: 2024Q4

REPORT INFORMATION
  Report Type: Spontaneous
  Country: US (occurrence: US)
  Receive Date: 20241115
  Receipt Date: 20241128
  Transmission Date: 20250115
  Serious: Yes (Death, Congenital Anomaly, Other)
  Sender: CSL BEHRING
  Company Number: US-BEH-2024185662

PATIENT

DRUGS (2)
  1. HUMAN IMMUNOGLOBULIN G [Suspect]
     Active Substance: HUMAN IMMUNOGLOBULIN G
     Dosage: UNK
     Route: 064
  2. DEXAMETHASONE [Suspect]
     Active Substance: DEXAMETHASONE
     Dosage: UNK
     Route: 064

REACTIONS (4)
  - Uhl^s anomaly [Fatal]
  - Dilated cardiomyopathy [Fatal]
  - Endocardial fibroelastosis [Fatal]
  - Foetal exposure during pregnancy [Unknown]
